APPROVED DRUG PRODUCT: ESTROSTEP 21
Active Ingredient: ETHINYL ESTRADIOL; NORETHINDRONE ACETATE
Strength: 0.02MG,0.03MG,0.035MG;1MG,1MG,1MG **Federal Register determination that product was not discontinued or withdrawn for safety or effectiveness reasons**
Dosage Form/Route: TABLET;ORAL-21
Application: N020130 | Product #001
Applicant: ALLERGAN PHARMACEUTICALS INTERNATIONAL LTD
Approved: Oct 9, 1996 | RLD: Yes | RS: No | Type: DISCN